FAERS Safety Report 4498769-3 (Version None)
Quarter: 2004Q4

REPORT INFORMATION
  Report Type: 
  Country: None (occurrence: None)
  Receive Date: 20041110
  Receipt Date: 20041110
  Transmission Date: 20050328
  Serious: No
  Sender: FDA-Public Use
  Company Number: None

PATIENT
  Age: 53 Year
  Sex: Male
  Weight: 59.4 kg

DRUGS (4)
  1. CISPLATIN [Suspect]
  2. DEXAMETHASONE [Concomitant]
  3. PROCHLORPERAZINE MALEATE [Concomitant]
  4. APREPITANT [Concomitant]

REACTIONS (2)
  - DEHYDRATION [None]
  - VOMITING [None]
